FAERS Safety Report 6167592-6 (Version None)
Quarter: 2009Q2

REPORT INFORMATION
  Report Type: 
  Country: None (occurrence: None)
  Receive Date: 20090424
  Receipt Date: 20090415
  Transmission Date: 20091009
  Serious: Yes (Other)
  Sender: FDA-Public Use
  Company Number: US-AMGEN-KDL339407

PATIENT
  Sex: Female
  Weight: 90.8 kg

DRUGS (12)
  1. ENBREL [Suspect]
     Indication: PSORIATIC ARTHROPATHY
     Route: 058
     Dates: start: 20040315, end: 20081208
  2. ENBREL [Suspect]
     Indication: PSORIASIS
  3. ESTROGEN NOS [Concomitant]
  4. METFORMIN HCL [Concomitant]
  5. BYETTA [Concomitant]
  6. OMEPRAZOLE [Concomitant]
  7. CYMBALTA [Concomitant]
  8. DETROL [Concomitant]
  9. LISINOPRIL [Concomitant]
  10. VITAMIN TAB [Concomitant]
  11. VITAMIN B COMPLEX CAP [Concomitant]
  12. ASPIRIN [Concomitant]

REACTIONS (2)
  - THERAPEUTIC RESPONSE DECREASED [None]
  - TUBERCULIN TEST POSITIVE [None]
